FAERS Safety Report 7800621-X (Version None)
Quarter: 2011Q4

REPORT INFORMATION
  Report Type: 
  Country: None (occurrence: None)
  Receive Date: 20111006
  Receipt Date: 20110923
  Transmission Date: 20120403
  Serious: No
  Sender: FDA-Public Use
  Company Number: US-B.I. PHARMACEUTICALS,INC./RIDGEFIELD-2010-BP-02246BP

PATIENT
  Sex: Female
  Weight: 53 kg

DRUGS (11)
  1. CENTRUM SILVER FOR WOMEN [Concomitant]
  2. SPIRIVA [Suspect]
     Indication: CHRONIC OBSTRUCTIVE PULMONARY DISEASE
     Dosage: 18 MCG
     Route: 055
     Dates: start: 20080101
  3. ALPRAZOLAM [Concomitant]
     Dates: start: 20080316
  4. COMBIVENT [Concomitant]
     Indication: ASTHMA
     Dosage: 8 PUF
     Route: 055
     Dates: start: 20000110
  5. CELEXA [Concomitant]
     Indication: DEPRESSION
     Dosage: 40 MG
     Dates: start: 20080316
  6. XANAX [Concomitant]
     Indication: NERVOUSNESS
     Dosage: 2 MG
  7. COMBIVENT [Concomitant]
     Indication: CHRONIC OBSTRUCTIVE PULMONARY DISEASE
  8. NEXIUM [Concomitant]
     Indication: GASTROOESOPHAGEAL REFLUX DISEASE
     Dates: start: 20080316
  9. PLAVIX [Concomitant]
     Indication: ANTICOAGULANT THERAPY
     Route: 048
     Dates: start: 20080308
  10. VITAMIN D [Concomitant]
  11. CALCIUM CARBONATE [Concomitant]

REACTIONS (4)
  - DRY EYE [None]
  - WEIGHT DECREASED [None]
  - SOMNOLENCE [None]
  - THROMBOSIS [None]
